FAERS Safety Report 8890002 (Version 1)
Quarter: 2012Q4

REPORT INFORMATION
  Report Type: 
  Country: US (occurrence: US)
  Receive Date: 20121107
  Receipt Date: 20121107
  Transmission Date: 20130627
  Serious: No
  Sender: FDA-Public Use
  Company Number: US-PFIZER INC-2012274195

PATIENT
  Age: 30 Year
  Sex: Female
  Weight: 48.1 kg

DRUGS (1)
  1. LEVOXYL [Suspect]
     Indication: HASHIMOTO^S THYROIDITIS
     Dosage: 75 ug, daily
     Dates: start: 20121027

REACTIONS (2)
  - Abdominal distension [Not Recovered/Not Resolved]
  - Flatulence [Not Recovered/Not Resolved]
